FAERS Safety Report 23604162 (Version 1)
Quarter: 2024Q1

REPORT INFORMATION
  Report Type: Spontaneous
  Country: IN (occurrence: IN)
  Receive Date: 20240307
  Receipt Date: 20240307
  Transmission Date: 20240410
  Serious: Yes (Other)
  Sender: FDA-Public Use
  Company Number: IN-862174955-ML2024-01420

PATIENT
  Age: 4 Decade
  Sex: Female

DRUGS (6)
  1. GLIMEPIRIDE [Suspect]
     Active Substance: GLIMEPIRIDE
     Indication: Type 2 diabetes mellitus
     Dosage: 2 MG DAILY
  2. METFORMIN [Suspect]
     Active Substance: METFORMIN HYDROCHLORIDE
     Indication: Type 2 diabetes mellitus
     Dosage: 500 MG SR DAILY
  3. VOGLIBOSE [Suspect]
     Active Substance: VOGLIBOSE
     Indication: Type 2 diabetes mellitus
     Dosage: 0.2 MG DAILY
  4. CLOMIPHENE CITRATE [Suspect]
     Active Substance: CLOMIPHENE CITRATE
     Indication: Polycystic ovarian syndrome
     Route: 048
  5. CHOLECALCIFEROL [Concomitant]
     Active Substance: CHOLECALCIFEROL
     Indication: Polycystic ovarian syndrome
     Dosage: 10,000 IU TWICE WEEKLY
  6. CALCIUM [Concomitant]
     Active Substance: CALCIUM
     Indication: Polycystic ovarian syndrome
     Dosage: 1250 MG TWICE DAILY

REACTIONS (2)
  - Erythema multiforme [Recovered/Resolved]
  - Dermatitis [Recovered/Resolved]
